FAERS Safety Report 20211261 (Version 1)
Quarter: 2021Q4

REPORT INFORMATION
  Report Type: Spontaneous
  Country: US (occurrence: US)
  Receive Date: 20211221
  Receipt Date: 20211221
  Transmission Date: 20220303
  Serious: Yes (Death, Hospitalization)
  Sender: FDA-Public Use
  Company Number: US-JNJFOC-20211219337

PATIENT
  Age: 33 Year
  Sex: Male
  Weight: 83 kg

DRUGS (4)
  1. ACETAMINOPHEN [Suspect]
     Active Substance: ACETAMINOPHEN
     Indication: Suicide attempt
     Dosage: TOTAL DOSE OF 13000 MG OF ACETAMINOPHEN ON 17-FEB-2003 AT 20:30
     Route: 048
     Dates: start: 20030217, end: 20030217
  2. NORCO [Suspect]
     Active Substance: ACETAMINOPHEN\HYDROCODONE BITARTRATE
     Indication: Suicide attempt
     Route: 048
     Dates: end: 20030217
  3. SOMA [Concomitant]
     Active Substance: CARISOPRODOL
     Route: 065
  4. VITAMINS [Concomitant]
     Active Substance: VITAMINS
     Indication: Product used for unknown indication
     Route: 065
     Dates: end: 20030217

REACTIONS (5)
  - Completed suicide [Fatal]
  - Klebsiella infection [Fatal]
  - Acute hepatic failure [Fatal]
  - Brain oedema [Fatal]
  - Overdose [Fatal]
